FAERS Safety Report 7679389-6 (Version None)
Quarter: 2011Q3

REPORT INFORMATION
  Report Type: 
  Country: None (occurrence: None)
  Receive Date: 20110805
  Receipt Date: 20110726
  Transmission Date: 20111222
  Serious: Yes (Other)
  Sender: FDA-Public Use
  Company Number: 2011SP035075

PATIENT
  Age: 24 Year
  Sex: Female

DRUGS (7)
  1. LISINOPRIL [Concomitant]
  2. INSULIN [Concomitant]
  3. DIALYVITE 3000 [Concomitant]
  4. IMPLANON [Suspect]
     Indication: CONTRACEPTION
     Dosage: 1 DF; SBDE
     Route: 059
  5. CLONIDINE [Concomitant]
  6. ZOCOR [Concomitant]
  7. NORVASC [Concomitant]

REACTIONS (1)
  - ARTERIOVENOUS FISTULA OPERATION [None]
